FAERS Safety Report 8313358-8 (Version None)
Quarter: 2012Q2

REPORT INFORMATION
  Report Type: 
  Country: None (occurrence: None)
  Receive Date: 20120426
  Receipt Date: 20120420
  Transmission Date: 20120825
  Serious: Yes (Other)
  Sender: FDA-Public Use
  Company Number: PHHY2012DE034168

PATIENT
  Age: 76 Year
  Sex: Female
  Weight: 79 kg

DRUGS (5)
  1. ZOMETA [Suspect]
     Indication: MULTIPLE MYELOMA
     Dosage: 4 MG, UNK
     Route: 042
     Dates: start: 20100223, end: 20120315
  2. DEXAMETHASONE SODIUM PHOSPHATE [Concomitant]
     Indication: MULTIPLE MYELOMA
     Dosage: 20 MG, PER DAY
     Route: 048
     Dates: start: 20110228
  3. REVLIMID [Concomitant]
     Dosage: 15 MG, PER DAY
     Route: 048
     Dates: start: 20110406, end: 20120226
  4. REVLIMID [Concomitant]
     Dosage: 10 MG, PER DAY
     Route: 048
  5. REVLIMID [Concomitant]
     Indication: MULTIPLE MYELOMA
     Dosage: 25 MG, PER DAY
     Route: 048
     Dates: start: 20110228, end: 20110320

REACTIONS (2)
  - OSTEONECROSIS OF JAW [None]
  - TOOTH LOSS [None]
